FAERS Safety Report 5436043-9 (Version None)
Quarter: 2007Q3

REPORT INFORMATION
  Report Type: 
  Country: None (occurrence: None)
  Receive Date: 20070831
  Receipt Date: 20070824
  Transmission Date: 20080115
  Serious: Yes (Disabling)
  Sender: FDA-Public Use
  Company Number: B0485230A

PATIENT
  Age: 61 Year
  Sex: Female
  Weight: 92.2 kg

DRUGS (5)
  1. ROSIGLITAZONE [Suspect]
     Route: 048
     Dates: start: 20060707, end: 20060727
  2. BISOPROLOL [Concomitant]
     Route: 048
     Dates: start: 20060501
  3. FUROSEMIDE [Concomitant]
     Route: 048
     Dates: start: 20030101
  4. GLUCOPHAGE [Concomitant]
     Dosage: 500MG TWICE PER DAY
     Route: 048
     Dates: start: 20060324
  5. SLOZEM [Concomitant]
     Dosage: 180MG PER DAY
     Route: 048
     Dates: start: 20030101

REACTIONS (3)
  - CHEST DISCOMFORT [None]
  - DYSPNOEA [None]
  - JOINT SWELLING [None]
